FAERS Safety Report 9187215 (Version 1)
Quarter: 2013Q1

REPORT INFORMATION
  Report Type: Spontaneous
  Country: JP (occurrence: JP)
  Receive Date: 20130325
  Receipt Date: 20130325
  Transmission Date: 20140127
  Serious: Yes (Other)
  Sender: FDA-Public Use
  Company Number: PHHY2013JP028121

PATIENT
  Sex: Male

DRUGS (4)
  1. VOLTAREN [Suspect]
     Indication: BACK PAIN
     Dosage: 25 MG,
     Route: 048
     Dates: start: 20110928
  2. VOLTAREN [Suspect]
     Dosage: 25 MG
     Route: 048
     Dates: start: 201301
  3. VOLTAREN [Suspect]
     Dosage: 25 MG
     Route: 048
     Dates: start: 20130315
  4. GASTER [Concomitant]
     Dosage: 10 MG
     Route: 048

REACTIONS (9)
  - Shock [Recovered/Resolved]
  - Pruritus [Recovered/Resolved]
  - Erythema [Recovered/Resolved]
  - Cold sweat [Recovered/Resolved]
  - Dyspnoea [Recovered/Resolved]
  - Tremor [Recovered/Resolved]
  - Visual impairment [Recovered/Resolved]
  - Loss of consciousness [Recovered/Resolved]
  - Urticaria [Unknown]
